FAERS Safety Report 5191632-4 (Version None)
Quarter: 2006Q4

REPORT INFORMATION
  Report Type: 
  Country: None (occurrence: None)
  Receive Date: 20061219
  Receipt Date: 20061206
  Transmission Date: 20070319
  Serious: Yes (Other)
  Sender: FDA-Public Use
  Company Number: 2006147219

PATIENT
  Age: 60 Year
  Sex: Female

DRUGS (3)
  1. EPIRUBICIN HYDROCHLORIDE [Suspect]
     Indication: BREAST CANCER
     Dosage: 100 MG/M*2, INTRAVENOUS
     Route: 042
     Dates: start: 20061121
  2. FLUOROURACIL [Suspect]
     Indication: BREAST CANCER
     Dosage: 500 MG/M*2, INTRAVENOUS
     Route: 042
     Dates: start: 20061121, end: 20061121
  3. CYCLOPHOSPHAMIDE [Suspect]
     Indication: BREAST CANCER
     Dosage: 500 MG/M*2, INTRAVENOUS
     Route: 042
     Dates: start: 20061121

REACTIONS (1)
  - PANCREATITIS ACUTE [None]
